FAERS Safety Report 21833550 (Version 3)
Quarter: 2023Q1

REPORT INFORMATION
  Report Type: Spontaneous
  Country: FR (occurrence: FR)
  Receive Date: 20230107
  Receipt Date: 20230314
  Transmission Date: 20230417
  Serious: Yes (Life-Threatening, Hospitalization, Other)
  Sender: FDA-Public Use
  Company Number: FR-Accord-294845

PATIENT
  Age: 56 Year
  Sex: Female

DRUGS (4)
  1. FLUOXETINE [Suspect]
     Active Substance: FLUOXETINE HYDROCHLORIDE
     Dosage: 20 MG IN THE MORNING AND 20 MG AT NOON
  2. OLANZAPINE [Suspect]
     Active Substance: OLANZAPINE
     Dosage: 20 MG IN THE EVENING
  3. ACETAMINOPHEN [Suspect]
     Active Substance: ACETAMINOPHEN
     Dosage: CUMULATIVE DOSE :138 G, STRENGTH: 1 G
     Route: 048
  4. BROMAZEPAM [Suspect]
     Active Substance: BROMAZEPAM
     Dosage: 3 MG FOUR TIMES A DAY AND 6 MG IN THE EVENING

REACTIONS (9)
  - Hepatitis acute [Recovering/Resolving]
  - Hepatic failure [Recovering/Resolving]
  - Renal tubular necrosis [Recovering/Resolving]
  - Bezoar [Recovered/Resolved]
  - Intentional overdose [Unknown]
  - Acute kidney injury [Recovered/Resolved]
  - Prothrombin time shortened [Recovering/Resolving]
  - Toxicity to various agents [Unknown]
  - Metabolic acidosis [Recovering/Resolving]
